FAERS Safety Report 9031857 (Version 2)
Quarter: 2013Q2

REPORT INFORMATION
  Report Type: Spontaneous
  Country: US (occurrence: US)
  Receive Date: 20130124
  Receipt Date: 20130424
  Transmission Date: 20140414
  Serious: Yes (Hospitalization, Other)
  Sender: FDA-Public Use
  Company Number: US-ELI_LILLY_AND_COMPANY-US201301004213

PATIENT
  Age: 38 Year
  Sex: Male

DRUGS (7)
  1. HUMALOG 50% LISPRO, 50% NPL [Suspect]
     Indication: TYPE 1 DIABETES MELLITUS
  2. HUMALOG 50% LISPRO, 50% NPL [Suspect]
     Indication: TYPE 1 DIABETES MELLITUS
  3. LANTUS [Concomitant]
  4. VIGAMOX [Concomitant]
     Dosage: UNK, QID
     Route: 047
  5. AMOXICILLIN [Concomitant]
  6. LIPITOR [Concomitant]
  7. LISINOPRIL [Concomitant]

REACTIONS (9)
  - Blindness [Unknown]
  - Vitreous haemorrhage [Unknown]
  - Diabetic retinopathy [Unknown]
  - Retinal detachment [Unknown]
  - Visual acuity reduced [Unknown]
  - Retinal ischaemia [Unknown]
  - Vision blurred [Unknown]
  - Eye injury [Unknown]
  - Eye pruritus [Unknown]
